FAERS Safety Report 8234468-X (Version None)
Quarter: 2012Q1

REPORT INFORMATION
  Report Type: 
  Country: None (occurrence: None)
  Receive Date: 20120326
  Receipt Date: 20120315
  Transmission Date: 20120608
  Serious: Yes (Death, Hospitalization, Other)
  Sender: FDA-Public Use
  Company Number: FR-ELI_LILLY_AND_COMPANY-FR201109006257

PATIENT
  Sex: Female
  Weight: 83.5 kg

DRUGS (8)
  1. PERINDOPRIL ERBUMINE [Concomitant]
     Indication: ATRIAL FIBRILLATION
  2. POTASSIUM CHLORIDE [Concomitant]
     Indication: ATRIAL FIBRILLATION
  3. CORGARD [Concomitant]
     Indication: ATRIAL FIBRILLATION
  4. LASIX [Concomitant]
     Indication: ATRIAL FIBRILLATION
  5. PREVISCAN [Concomitant]
     Indication: ATRIAL FIBRILLATION
  6. FORTEO [Suspect]
     Indication: OSTEOPOROSIS
     Dosage: 20 UG, QD
     Route: 058
     Dates: start: 20110413
  7. PENICILLIN [Concomitant]
     Indication: HEPATO-LENTICULAR DEGENERATION
  8. AMIODARONE HYDROCHLORIDE [Concomitant]
     Indication: HYPERTENSION

REACTIONS (7)
  - BONE LESION [None]
  - SKIN INFECTION [None]
  - LUNG INFECTION [None]
  - SEPTIC SHOCK [None]
  - CANDIDIASIS [None]
  - STAPHYLOCOCCAL SEPSIS [None]
  - MULTI-ORGAN FAILURE [None]
